FAERS Safety Report 4446028-7 (Version None)
Quarter: 2004Q3

REPORT INFORMATION
  Report Type: 
  Country: None (occurrence: None)
  Receive Date: 20040910
  Receipt Date: 20040318
  Transmission Date: 20050211
  Serious: Yes (Disabling)
  Sender: FDA-Public Use
  Company Number: JP-GLAXOSMITHKLINE-B0327854A

PATIENT
  Age: 56 Year
  Sex: Female
  Weight: 47 kg

DRUGS (11)
  1. ZEFIX [Suspect]
     Indication: HEPATITIS B
     Dosage: 100MG PER DAY
     Route: 048
     Dates: start: 20040227, end: 20040315
  2. EXCEGRAN [Concomitant]
     Indication: MENINGEOMAS SURGERY
     Dosage: 200VA PER DAY
     Route: 048
     Dates: start: 20040304, end: 20040305
  3. GASTER D [Concomitant]
     Indication: GASTRITIS
     Dosage: 40MG PER DAY
     Route: 048
     Dates: start: 20040128
  4. SLOW-K [Concomitant]
     Dosage: 1800MG PER DAY
     Route: 048
     Dates: start: 20040126
  5. URSOSAN [Concomitant]
     Indication: HEPATITIS B
     Dosage: 600MG PER DAY
     Route: 048
     Dates: start: 20040123
  6. ALDACTONE A [Concomitant]
     Dosage: 25MG PER DAY
     Route: 048
     Dates: start: 20040124
  7. YODEL S [Concomitant]
     Indication: CONSTIPATION
     Dosage: 80MG PER DAY
     Route: 048
  8. AMOBAN [Concomitant]
     Indication: INSOMNIA
     Dosage: 7.5MG PER DAY
     Route: 048
  9. EURODIN [Concomitant]
     Indication: INSOMNIA
     Dosage: 2MG PER DAY
     Route: 048
  10. STOMILASE [Concomitant]
     Indication: DECREASED APPETITE
     Dosage: 6U PER DAY
     Route: 048
  11. NEO-MINOPHAGEN C [Concomitant]
     Indication: HEPATITIS B
     Dosage: 100ML PER DAY
     Route: 042
     Dates: start: 20031231

REACTIONS (6)
  - ALANINE AMINOTRANSFERASE INCREASED [None]
  - ASPARTATE AMINOTRANSFERASE INCREASED [None]
  - HEPATIC FUNCTION ABNORMAL [None]
  - HYPOAESTHESIA [None]
  - MALAISE [None]
  - SENSATION OF HEAVINESS [None]
